FAERS Safety Report 10283078 (Version 1)
Quarter: 2014Q3

REPORT INFORMATION
  Report Type: Report from Study
  Country: AU (occurrence: AU)
  Receive Date: 20140708
  Receipt Date: 20140708
  Transmission Date: 20150326
  Serious: Yes (Other)
  Sender: FDA-Public Use
  Company Number: AU-ROCHE-1431236

PATIENT

DRUGS (1)
  1. ACTEMRA [Suspect]
     Active Substance: TOCILIZUMAB
     Indication: RHEUMATOID ARTHRITIS
     Route: 042
     Dates: start: 20110525, end: 20120404

REACTIONS (3)
  - Palpitations [Recovered/Resolved]
  - Gastrooesophageal reflux disease [Recovered/Resolved]
  - Wheezing [Recovered/Resolved]
